FAERS Safety Report 16733161 (Version 2)
Quarter: 2025Q2

REPORT INFORMATION
  Report Type: Spontaneous
  Country: US (occurrence: US)
  Receive Date: 20190823
  Receipt Date: 20250411
  Transmission Date: 20250717
  Serious: No
  Sender: MERCK SHARP AND DOHME
  Company Number: US-009507513-1908USA006392

PATIENT
  Sex: Male

DRUGS (5)
  1. JANUVIA [Suspect]
     Active Substance: SITAGLIPTIN PHOSPHATE
     Indication: Diabetes mellitus
     Dosage: DOSE DESCRIPTION : 1 TABLET, TWICE DAILY?DAILY DOSE : 2 DOSAGE FORM?CONCENTRATION: 50 MILLIGRAM
     Route: 048
     Dates: start: 201902, end: 20190807
  2. AMLODIPINE [Concomitant]
     Active Substance: AMLODIPINE BESYLATE
  3. TRIAMCINOLONE [Concomitant]
     Active Substance: TRIAMCINOLONE
  4. METRONIDAZOLE [Concomitant]
     Active Substance: METRONIDAZOLE
  5. FLUCONAZOLE [Concomitant]
     Active Substance: FLUCONAZOLE

REACTIONS (6)
  - Blister [Recovering/Resolving]
  - Blood blister [Recovering/Resolving]
  - Nausea [Recovering/Resolving]
  - Diarrhoea [Recovering/Resolving]
  - Therapy cessation [Unknown]
  - Inappropriate schedule of product administration [Unknown]

NARRATIVE: CASE EVENT DATE: 20190101
